FAERS Safety Report 4508839-9 (Version None)
Quarter: 2004Q4

REPORT INFORMATION
  Report Type: 
  Country: None (occurrence: None)
  Receive Date: 20041123
  Receipt Date: 20040920
  Transmission Date: 20050328
  Serious: No
  Sender: FDA-Public Use
  Company Number: 2004/04109

PATIENT
  Sex: Female

DRUGS (4)
  1. BUPROPION HCL [Suspect]
     Dosage: 150MG SINGLE DOSE
     Route: 048
     Dates: start: 20040827
  2. LIBRIUM [Concomitant]
     Dosage: 5MG AS REQUIRED
     Dates: start: 19970101
  3. TOPROL-XL [Concomitant]
     Dosage: 50MG PER DAY
     Dates: start: 20001001
  4. NORVASC [Concomitant]
     Dosage: 5MG PER DAY
     Dates: start: 20010101

REACTIONS (3)
  - ANXIETY [None]
  - DIZZINESS [None]
  - INSOMNIA [None]
